FAERS Safety Report 6160333-8 (Version None)
Quarter: 2009Q2

REPORT INFORMATION
  Report Type: 
  Country: None (occurrence: None)
  Receive Date: 20090415
  Receipt Date: 20090415
  Transmission Date: 20091009
  Serious: No
  Sender: FDA-Public Use
  Company Number: None

PATIENT
  Age: 30 Year
  Sex: Female
  Weight: 57.1532 kg

DRUGS (1)
  1. ZYRTEC [Suspect]
     Indication: HYPERSENSITIVITY
     Dosage: 10 MG 1 PER DAY
     Dates: start: 20070501, end: 20090401

REACTIONS (15)
  - BLOOD PRESSURE SYSTOLIC INCREASED [None]
  - CONTUSION [None]
  - DRUG DEPENDENCE [None]
  - DRUG DOSE OMISSION [None]
  - DRUG INEFFECTIVE [None]
  - DRUG WITHDRAWAL SYNDROME [None]
  - PALPITATIONS [None]
  - PANIC ATTACK [None]
  - PRURITUS [None]
  - RESPIRATION ABNORMAL [None]
  - RESPIRATORY RATE INCREASED [None]
  - SKIN BURNING SENSATION [None]
  - SKIN WARM [None]
  - TREATMENT NONCOMPLIANCE [None]
  - URTICARIA [None]
